FAERS Safety Report 14541815 (Version 2)
Quarter: 2018Q2

REPORT INFORMATION
  Report Type: Spontaneous
  Country: GB (occurrence: GB)
  Receive Date: 20180216
  Receipt Date: 20180417
  Transmission Date: 20180711
  Serious: Yes (Other)
  Sender: FDA-Public Use
  Company Number: GB-TEVA-2018-GB-857006

PATIENT
  Age: 45 Year
  Sex: Female
  Weight: 69.85 kg

DRUGS (1)
  1. GENERICS UK CO-AMOXICLAV [Suspect]
     Active Substance: AMOXICILLIN\CLAVULANIC ACID
     Indication: FUNGAL INFECTION
     Route: 048
     Dates: start: 20171019, end: 20171020

REACTIONS (3)
  - Rash [Unknown]
  - Hypersensitivity [Recovered/Resolved]
  - Secretion discharge [Unknown]

NARRATIVE: CASE EVENT DATE: 20171019
